FAERS Safety Report 4811963-4 (Version None)
Quarter: 2005Q4

REPORT INFORMATION
  Report Type: 
  Country: None (occurrence: None)
  Receive Date: 20051026
  Receipt Date: 20051017
  Transmission Date: 20060501
  Serious: Yes (Hospitalization)
  Sender: FDA-Public Use
  Company Number: 2005142510

PATIENT
  Age: 34 Year
  Sex: Female

DRUGS (1)
  1. CYTOTEC [Suspect]
     Indication: ABORTION INDUCED
     Dosage: 400 MCG (200 MCG ) ORAL
     Route: 048
     Dates: start: 20050822, end: 20050822

REACTIONS (1)
  - RASH PRURITIC [None]
